FAERS Safety Report 9228159 (Version 2)
Quarter: 2013Q2

REPORT INFORMATION
  Report Type: Spontaneous
  Country: GB (occurrence: GB)
  Receive Date: 20130412
  Receipt Date: 20130614
  Transmission Date: 20140414
  Serious: Yes (Hospitalization)
  Sender: FDA-Public Use
  Company Number: GB-ROCHE-1210991

PATIENT
  Age: 1 Day
  Sex: Female
  Weight: 1.25 kg

DRUGS (1)
  1. ACTILYSE [Suspect]
     Indication: AORTIC THROMBOSIS
     Dosage: INITIALLY 10% I.V. STAT OVER 1-2 MIN. THEN 50% AS INFUSION OVER 1 H THEN 40% AS INFUSION OVER 2 H.
     Route: 042

REACTIONS (1)
  - Necrotising colitis [Recovered/Resolved]
